FAERS Safety Report 18581405 (Version 1)
Quarter: 2020Q4

REPORT INFORMATION
  Report Type: Spontaneous
  Country: CO (occurrence: CO)
  Receive Date: 20201204
  Receipt Date: 20201204
  Transmission Date: 20210114
  Serious: Yes (Hospitalization)
  Sender: FDA-Public Use
  Company Number: CO-BAYER-2020-260225

PATIENT
  Age: 56 Year
  Sex: Female
  Weight: 48 kg

DRUGS (4)
  1. GADOVIST [Suspect]
     Active Substance: GADOBUTROL
     Indication: ABDOMINAL PAIN UPPER
  2. GADOVIST [Suspect]
     Active Substance: GADOBUTROL
     Indication: MAGNETIC RESONANCE IMAGING
  3. GADOVIST [Suspect]
     Active Substance: GADOBUTROL
     Indication: PANCREATIC DISORDER
     Dosage: 5 ML, ONCE
     Route: 042
     Dates: start: 20201009, end: 20201009
  4. GADOVIST [Suspect]
     Active Substance: GADOBUTROL
     Indication: JAUNDICE

REACTIONS (4)
  - Oxygen saturation decreased [Recovered/Resolved]
  - Jaundice [Recovered/Resolved]
  - Tachycardia [Recovered/Resolved]
  - Tachypnoea [Recovered/Resolved]

NARRATIVE: CASE EVENT DATE: 20201009
